FAERS Safety Report 5122903-5 (Version None)
Quarter: 2006Q4

REPORT INFORMATION
  Report Type: 
  Country: None (occurrence: None)
  Receive Date: 20061009
  Receipt Date: 20060925
  Transmission Date: 20070319
  Serious: Yes (Other)
  Sender: FDA-Public Use
  Company Number: PHFR2006GB02881

PATIENT
  Age: 53 Year
  Sex: Male
  Weight: 104 kg

DRUGS (4)
  1. FLUVASTATIN SODIUM [Suspect]
     Indication: HYPERLIPIDAEMIA
     Dosage: 20 MG, QD
     Route: 048
     Dates: start: 20060301
  2. GEMFIBROZIL [Concomitant]
     Indication: HYPERLIPIDAEMIA
     Route: 048
  3. IRBESARTAN [Concomitant]
     Indication: HYPERTENSION
     Dosage: 300 DF
     Route: 048
  4. WARFARIN SODIUM [Concomitant]
     Indication: AORTIC VALVE REPLACEMENT

REACTIONS (1)
  - TENDON RUPTURE [None]
